FAERS Safety Report 9797315 (Version 1)
Quarter: 2014Q1

REPORT INFORMATION
  Report Type: Spontaneous
  Country: US (occurrence: US)
  Receive Date: 20140106
  Receipt Date: 20140106
  Transmission Date: 20141002
  Serious: No
  Sender: FDA-Public Use
  Company Number: US-BIOGENIDEC-2013BI124460

PATIENT
  Age: 41 Year
  Sex: Female

DRUGS (1)
  1. TYSABRI [Suspect]
     Indication: MULTIPLE SCLEROSIS
     Route: 042
     Dates: start: 20130722

REACTIONS (8)
  - Sinus disorder [Unknown]
  - Diarrhoea [Unknown]
  - Pain [Unknown]
  - Memory impairment [Unknown]
  - Malaise [Unknown]
  - Fatigue [Unknown]
  - Nasopharyngitis [Unknown]
  - Influenza [Unknown]
